FAERS Safety Report 8272594-X (Version None)
Quarter: 2012Q2

REPORT INFORMATION
  Report Type: 
  Country: None (occurrence: None)
  Receive Date: 20120410
  Receipt Date: 20120329
  Transmission Date: 20120825
  Serious: Yes (Other)
  Sender: FDA-Public Use
  Company Number: US-RB-038827-12

PATIENT
  Age: 23 Year
  Sex: Male

DRUGS (3)
  1. SUBOXONE [Suspect]
     Indication: DRUG DEPENDENCE
     Dosage: UNKNOWN DAILY DOSAGE
     Route: 065
  2. PERCOCET [Suspect]
     Indication: PRODUCT USED FOR UNKNOWN INDICATION
     Dosage: UNKNOWN DOSAGE DETAILS
     Route: 065
  3. SUBUTEX [Suspect]
     Indication: DRUG DEPENDENCE
     Dosage: UNKNOWN DAILY DOSAGE
     Route: 065

REACTIONS (8)
  - SUBSTANCE ABUSE [None]
  - CARDIAC DISORDER [None]
  - INTENTIONAL DRUG MISUSE [None]
  - PNEUMONIA [None]
  - THERAPEUTIC RESPONSE DECREASED [None]
  - PULMONARY OEDEMA [None]
  - PAIN [None]
  - HEADACHE [None]
